FAERS Safety Report 20096469 (Version 1)
Quarter: 2021Q4

REPORT INFORMATION
  Report Type: Spontaneous
  Country: US (occurrence: None)
  Receive Date: 20211119
  Receipt Date: 20211119
  Transmission Date: 20220303
  Serious: Yes (Death)
  Sender: FDA-Public Use
  Company Number: None

PATIENT
  Age: 56 Year
  Sex: Female

DRUGS (2)
  1. UDENYCA [Suspect]
     Active Substance: PEGFILGRASTIM-CBQV
     Indication: Product used for unknown indication
     Dosage: OTHER FREQUENCY : Q 2 WEEKS;?OTHER ROUTE : INTO SKIN;?
     Route: 050
     Dates: start: 20210708
  2. NOT REPORTED [Concomitant]

REACTIONS (1)
  - Death [None]
